FAERS Safety Report 14260802 (Version 1)
Quarter: 2017Q4

REPORT INFORMATION
  Report Type: Report from Study
  Country: US (occurrence: US)
  Receive Date: 20171207
  Receipt Date: 20171207
  Transmission Date: 20180321
  Serious: Yes (Other)
  Sender: FDA-Public Use
  Company Number: US-BAUSCH-BL-2017-033157

PATIENT
  Sex: Male
  Weight: 77.18 kg

DRUGS (9)
  1. VENLAFAXINE [Concomitant]
     Active Substance: VENLAFAXINE HYDROCHLORIDE
     Indication: PRODUCT USED FOR UNKNOWN INDICATION
     Route: 048
  2. PREDNISONE. [Concomitant]
     Active Substance: PREDNISONE
     Indication: PRODUCT USED FOR UNKNOWN INDICATION
     Dosage: MAY TAKE PREDNISONE 20 MG DEPENDING ON HOW HE IS DOING
     Route: 048
  3. OMEPRAZOLE. [Concomitant]
     Active Substance: OMEPRAZOLE
     Indication: PRODUCT USED FOR UNKNOWN INDICATION
     Route: 048
  4. FLUOXETINE [Concomitant]
     Active Substance: FLUOXETINE HYDROCHLORIDE
     Indication: PRODUCT USED FOR UNKNOWN INDICATION
     Route: 048
  5. TAMSULOSIN [Concomitant]
     Active Substance: TAMSULOSIN
     Indication: PRODUCT USED FOR UNKNOWN INDICATION
     Route: 048
  6. XIFAXAN [Suspect]
     Active Substance: RIFAXIMIN
     Route: 048
     Dates: start: 201710
  7. CLONAZEPAM. [Concomitant]
     Active Substance: CLONAZEPAM
     Indication: PRODUCT USED FOR UNKNOWN INDICATION
     Dosage: AS NEEDED
     Route: 048
  8. XIFAXAN [Suspect]
     Active Substance: RIFAXIMIN
     Indication: GASTROINTESTINAL BACTERIAL INFECTION
     Route: 048
     Dates: start: 201708
  9. COLESTIPOL [Concomitant]
     Active Substance: COLESTIPOL
     Indication: BILIARY DRAINAGE
     Dosage: 2-4 TIMES DAILY WITH FOOD INTAKE
     Route: 048

REACTIONS (6)
  - Cataract operation complication [Not Recovered/Not Resolved]
  - Gastrointestinal bacterial infection [Not Recovered/Not Resolved]
  - Off label use [Not Recovered/Not Resolved]
  - Drug effect decreased [Unknown]
  - Symptom recurrence [Not Recovered/Not Resolved]
  - Immune system disorder [Not Recovered/Not Resolved]

NARRATIVE: CASE EVENT DATE: 2017
